FAERS Safety Report 8090248-X (Version None)
Quarter: 2012Q1

REPORT INFORMATION
  Report Type: 
  Country: None (occurrence: None)
  Receive Date: 20120129
  Receipt Date: 20111107
  Transmission Date: 20120608
  Serious: No
  Sender: FDA-Public Use
  Company Number: US-ABBOTT-11P-163-0872383-00

PATIENT
  Age: 73 Year
  Sex: Male

DRUGS (7)
  1. PREDNISONE TAB [Concomitant]
     Indication: COLITIS ULCERATIVE
     Dosage: DAILY
  2. LIALDA [Concomitant]
     Indication: COLITIS ULCERATIVE
     Dosage: DR BID
  3. ALLOPURINOL [Concomitant]
     Indication: GOUT
     Dosage: DAILY
  4. SIMVASTATIN [Concomitant]
     Indication: BLOOD CHOLESTEROL INCREASED
     Dosage: DAILY
  5. HUMIRA [Suspect]
     Indication: COLITIS ULCERATIVE
     Dates: start: 20111021
  6. HUMIRA [Suspect]
     Dates: start: 20111104
  7. LISINOPRIL [Concomitant]
     Indication: HYPERTENSION
     Dosage: DAILY

REACTIONS (6)
  - LETHARGY [None]
  - FATIGUE [None]
  - SOMNOLENCE [None]
  - GAIT DISTURBANCE [None]
  - ASTHENIA [None]
  - DYSPNOEA [None]
